FAERS Safety Report 11138958 (Version 1)
Quarter: 2015Q2

REPORT INFORMATION
  Report Type: Spontaneous
  Country: IT (occurrence: IT)
  Receive Date: 20150527
  Receipt Date: 20150527
  Transmission Date: 20150821
  Serious: Yes (Hospitalization)
  Sender: FDA-Public Use
  Company Number: IT-BIOGENIDEC-2015BI070496

PATIENT
  Age: 32 Year
  Sex: Male
  Weight: 95 kg

DRUGS (1)
  1. TYSABRI [Suspect]
     Active Substance: NATALIZUMAB
     Indication: MULTIPLE SCLEROSIS
     Route: 042

REACTIONS (4)
  - Appendicitis [Unknown]
  - Ileus paralytic [Unknown]
  - Urinary retention [Unknown]
  - Constipation [Unknown]

NARRATIVE: CASE EVENT DATE: 20150422
